FAERS Safety Report 11873810 (Version 1)
Quarter: 2015Q4

REPORT INFORMATION
  Report Type: Spontaneous
  Country: NL (occurrence: NL)
  Receive Date: 20151229
  Receipt Date: 20151229
  Transmission Date: 20160305
  Serious: Yes (Other)
  Sender: FDA-Public Use
  Company Number: NL-009507513-1512NLD012164

PATIENT
  Age: 69 Year
  Sex: Female
  Weight: 101 kg

DRUGS (11)
  1. CALCICHEW D3 [Concomitant]
     Active Substance: CALCIUM\CHOLECALCIFEROL
     Dosage: 1D1T
     Route: 048
  2. MOVICOLON [Concomitant]
     Active Substance: POLYETHYLENE GLYCOL 3350\POTASSIUM CHLORIDE\SODIUM BICARBONATE\SODIUM CHLORIDE
     Dosage: 1D1SACHET
     Route: 048
  3. NOVOMIX 30 [Concomitant]
     Active Substance: INSULIN ASPART
     Route: 058
  4. SIMVASTATIN. [Suspect]
     Active Substance: SIMVASTATIN
     Indication: CARDIOVASCULAR EVENT PROPHYLAXIS
     Dosage: 1 KEER PER DAG 1 STUK(S)
     Route: 048
     Dates: start: 20111001, end: 20151222
  5. ASPIRIN. [Concomitant]
     Active Substance: ASPIRIN
     Dosage: 1DD 80MG
     Route: 048
  6. METFORMIN [Concomitant]
     Active Substance: METFORMIN HYDROCHLORIDE
     Dosage: 3 DD 1000 MG
     Route: 048
  7. CIPROFLOXACIN HYDROCHLORIDE. [Interacting]
     Active Substance: CIPROFLOXACIN HYDROCHLORIDE
     Indication: CYSTITIS
     Dosage: 2 KEER PER DAG 1 STUK(S)
     Route: 048
     Dates: start: 20151211, end: 20151218
  8. METOPROLOL [Concomitant]
     Active Substance: METOPROLOL
     Dosage: 1DD 100MG
     Route: 048
  9. MONO-CEDOCARD RETARD [Concomitant]
     Dosage: PROLONGED-RELEASE CAPSULE; 1 DD 50 MG
     Route: 048
  10. LISINOPRIL (+) HYDROCHLOROTHIAZIDE [Concomitant]
     Active Substance: HYDROCHLOROTHIAZIDE\LISINOPRIL
     Dosage: 1DD10 MG
     Route: 048
  11. PANZYTRAT [Concomitant]
     Dosage: 2DD2T
     Route: 048

REACTIONS (2)
  - Drug interaction [Recovering/Resolving]
  - Rhabdomyolysis [Recovering/Resolving]

NARRATIVE: CASE EVENT DATE: 20151212
